FAERS Safety Report 9949541 (Version 1)
Quarter: 2014Q1

REPORT INFORMATION
  Report Type: Spontaneous
  Country: US (occurrence: US)
  Receive Date: 20140304
  Receipt Date: 20140304
  Transmission Date: 20141002
  Serious: No
  Sender: FDA-Public Use
  Company Number: US-009507513-1402USA003670

PATIENT
  Sex: Male

DRUGS (2)
  1. CORICIDIN HBP COUGH AND COLD [Suspect]
     Indication: COUGH
     Dosage: UNK, UNKNOWN
     Route: 048
  2. CORICIDIN HBP COUGH AND COLD [Suspect]
     Indication: NASOPHARYNGITIS

REACTIONS (5)
  - Malaise [Not Recovered/Not Resolved]
  - Feeling abnormal [Not Recovered/Not Resolved]
  - Drug ineffective [Unknown]
  - Intentional overdose [Unknown]
  - Off label use [Unknown]
